FAERS Safety Report 4336458-6 (Version None)
Quarter: 2004Q2

REPORT INFORMATION
  Report Type: 
  Country: None (occurrence: None)
  Receive Date: 20040409
  Receipt Date: 20040409
  Transmission Date: 20050107
  Serious: Yes (Other)
  Sender: FDA-Public Use
  Company Number: None

PATIENT
  Age: 34 Year
  Sex: Female
  Weight: 55.3388 kg

DRUGS (1)
  1. COLD-EEZE NASAL 1X 3.36% -50 DOSE QUIGLEY [Suspect]
     Indication: NASOPHARYNGITIS
     Dosage: 1 DOSE 1 TIMES  NASAL
     Dates: start: 20040305, end: 20040305

REACTIONS (3)
  - AGEUSIA [None]
  - ANOSMIA [None]
  - BURNING SENSATION [None]
